FAERS Safety Report 8574012 (Version 2)
Quarter: 2014Q1

REPORT INFORMATION
  Report Type: Spontaneous
  Country: US (occurrence: US)
  Receive Date: 20120522
  Receipt Date: 20140113
  Transmission Date: 20141002
  Serious: Yes (Hospitalization)
  Sender: FDA-Public Use
  Company Number: US-GLAXOSMITHKLINE-A0933140A

PATIENT
  Age: 69 Year
  Sex: Female
  Weight: 80.9 kg

DRUGS (1)
  1. AVANDIA [Suspect]
     Indication: DIABETES MELLITUS
     Dosage: 8MG PER DAY
     Route: 048
     Dates: start: 200612, end: 20070410

REACTIONS (7)
  - Cardiovascular disorder [Recovering/Resolving]
  - Cardiac failure congestive [Unknown]
  - Sudden death [Unknown]
  - Post procedural complication [Unknown]
  - Acute pulmonary oedema [Unknown]
  - Atrial fibrillation [Unknown]
  - Myocardial infarction [Unknown]
